FAERS Safety Report 16019700 (Version 2)
Quarter: 2019Q1

REPORT INFORMATION
  Report Type: Report from Study
  Country: BR (occurrence: BR)
  Receive Date: 20190228
  Receipt Date: 20190228
  Transmission Date: 20190418
  Serious: Yes (Other)
  Sender: FDA-Public Use
  Company Number: PHHY2019BR019352

PATIENT
  Sex: Female
  Weight: 82 kg

DRUGS (5)
  1. HYDROCHLOROTHIAZIDE. [Concomitant]
     Active Substance: HYDROCHLOROTHIAZIDE
     Indication: PRODUCT USED FOR UNKNOWN INDICATION
     Dosage: UNK
     Route: 065
  2. DIOVAN AMLO FIX [Suspect]
     Active Substance: AMLODIPINE\VALSARTAN
     Indication: HYPERTENSION
     Dosage: 1 DF, QD (AMLODIPINE 5 MG AND VALSARTAN 160 MG)
     Route: 048
  3. CAPTOPRIL. [Suspect]
     Active Substance: CAPTOPRIL
     Indication: PRODUCT USED FOR UNKNOWN INDICATION
     Dosage: UNK, QID (40 UNITS NOT PROVIDED)
     Route: 048
     Dates: start: 1995, end: 2015
  4. AMLODIPINE [Concomitant]
     Active Substance: AMLODIPINE BESYLATE
     Indication: PRODUCT USED FOR UNKNOWN INDICATION
     Dosage: UNK
     Route: 065
  5. AMIODARONE [Concomitant]
     Active Substance: AMIODARONE
     Indication: PRODUCT USED FOR UNKNOWN INDICATION
     Dosage: UNK
     Route: 065

REACTIONS (13)
  - Fear [Unknown]
  - Depression [Unknown]
  - Asthenia [Unknown]
  - Blood pressure increased [Not Recovered/Not Resolved]
  - Blood pressure decreased [Unknown]
  - Heart rate increased [Unknown]
  - Feeling hot [Unknown]
  - Drug intolerance [Unknown]
  - Cold sweat [Unknown]
  - Arrhythmia [Not Recovered/Not Resolved]
  - Malaise [Unknown]
  - Overweight [Unknown]
  - Hypothyroidism [Not Recovered/Not Resolved]

NARRATIVE: CASE EVENT DATE: 1995
